FAERS Safety Report 21744068 (Version 1)
Quarter: 2022Q4

REPORT INFORMATION
  Report Type: Spontaneous
  Country: NL (occurrence: NL)
  Receive Date: 20221218
  Receipt Date: 20221218
  Transmission Date: 20230113
  Serious: Yes (Other)
  Sender: FDA-Public Use
  Company Number: NL-RECORDATI-2022005852

PATIENT
  Sex: Male

DRUGS (5)
  1. OLANZAPINE [Interacting]
     Active Substance: OLANZAPINE
     Indication: Product used for unknown indication
     Dosage: 5 MILLIGRAM, ONCE A DAY
     Route: 065
     Dates: end: 20221111
  2. CARIPRAZINE [Interacting]
     Active Substance: CARIPRAZINE
     Indication: Substance-induced psychotic disorder
     Dosage: 4.5 MILLIGRAM, ONCE A DAY
     Route: 065
     Dates: start: 20221115
  3. CARIPRAZINE [Interacting]
     Active Substance: CARIPRAZINE
     Dosage: 3 MILLIGRAM, ONCE A DAY
     Route: 065
     Dates: start: 20221018
  4. OXAZEPAM [Concomitant]
     Active Substance: OXAZEPAM
     Indication: Product used for unknown indication
     Dosage: 10 MILLIGRAM (10 MG 3/DAY WHEN NEEDED)
     Route: 065
  5. TOPIRAMATE [Concomitant]
     Active Substance: TOPIRAMATE
     Indication: Product used for unknown indication
     Dosage: 50 MILLIGRAM, ONCE A DAY (2X25 MG ONCE DAILY)
     Route: 065

REACTIONS (4)
  - Urinary retention [Recovered/Resolved]
  - Drug interaction [Recovered/Resolved]
  - Off label use [Unknown]
  - Drug dose titration not performed [Unknown]

NARRATIVE: CASE EVENT DATE: 20221111
